FAERS Safety Report 4798097-2 (Version None)
Quarter: 2005Q4

REPORT INFORMATION
  Report Type: 
  Country: None (occurrence: None)
  Receive Date: 20051006
  Receipt Date: 20051006
  Transmission Date: 20060501
  Serious: Yes (Life-Threatening, Hospitalization)
  Sender: FDA-Public Use
  Company Number: None

PATIENT
  Sex: Female

DRUGS (8)
  1. METHADONE [Suspect]
     Indication: DRUG WITHDRAWAL MAINTENANCE THERAPY
     Dosage: 35 MG DAILY
  2. MELLAVIL [Concomitant]
  3. PROZAC [Concomitant]
  4. XANAX [Concomitant]
  5. NEURONTIN [Concomitant]
  6. PRAVACHOL [Concomitant]
  7. SYNTHROID [Concomitant]
  8. METHADONE [Concomitant]

REACTIONS (4)
  - AGGRESSION [None]
  - INTENTIONAL DRUG MISUSE [None]
  - OVERDOSE [None]
  - RESPIRATORY RATE DECREASED [None]
